FAERS Safety Report 5045427-2 (Version None)
Quarter: 2006Q3

REPORT INFORMATION
  Report Type: 
  Country: None (occurrence: None)
  Receive Date: 20060707
  Receipt Date: 20060315
  Transmission Date: 20061208
  Serious: Yes (Hospitalization)
  Sender: FDA-Public Use
  Company Number: FR-ABBOTT-06P-056-0328389-00

PATIENT
  Age: 37 Year
  Sex: Male

DRUGS (17)
  1. NORVIR [Suspect]
     Indication: HIV INFECTION
     Dates: end: 20041001
  2. NORVIR [Suspect]
     Dates: start: 20041001, end: 20050101
  3. NORVIR [Suspect]
     Route: 048
     Dates: end: 20060214
  4. INDINIVIR SULFATE [Suspect]
     Indication: HIV INFECTION
     Dates: start: 20041001, end: 20050101
  5. INDINIVIR SULFATE [Suspect]
     Route: 048
     Dates: start: 20051015, end: 20060214
  6. LAMIVUDINE [Suspect]
     Indication: HIV INFECTION
     Dates: end: 20041001
  7. LAMIVUDINE [Suspect]
     Dates: start: 20041001, end: 20050101
  8. LAMIVUDINE [Suspect]
     Dates: start: 20050101, end: 20050614
  9. LAMIVUDINE [Suspect]
  10. TENOFOVIR [Suspect]
     Indication: HIV INFECTION
     Dates: start: 20050101, end: 20050614
  11. TENOFOVIR [Suspect]
     Route: 048
     Dates: start: 20060131, end: 20060214
  12. INSULIN [Concomitant]
     Indication: DIABETES MELLITUS
  13. PROPRANOLOL [Concomitant]
     Indication: DRUG USE FOR UNKNOWN INDICATION
     Route: 048
  14. DESLORATADINE [Concomitant]
     Indication: DRUG USE FOR UNKNOWN INDICATION
     Route: 048
  15. MIANSERIN [Concomitant]
     Indication: DRUG USE FOR UNKNOWN INDICATION
     Route: 048
  16. FORTIMEL [Concomitant]
     Indication: NUTRITIONAL SUPPORT
  17. STAVUDINE [Concomitant]
     Indication: DRUG USE FOR UNKNOWN INDICATION
     Dates: end: 20041001

REACTIONS (22)
  - ALPHA 1 GLOBULIN INCREASED [None]
  - BACTERIAL SEPSIS [None]
  - CANDIDA SEROLOGY POSITIVE [None]
  - CONFUSIONAL STATE [None]
  - CREATININE URINE DECREASED [None]
  - DIABETES MELLITUS INSULIN-DEPENDENT [None]
  - GENERAL PHYSICAL HEALTH DETERIORATION [None]
  - HEPATIC CIRRHOSIS [None]
  - HYPERGAMMAGLOBULINAEMIA [None]
  - HYPOALBUMINAEMIA [None]
  - HYPOCALCAEMIA [None]
  - HYPOCAPNIA [None]
  - HYPOXIA [None]
  - LEUKOCYTOSIS [None]
  - METABOLIC ACIDOSIS [None]
  - NEUTROPHILIA [None]
  - PANCREATITIS CHRONIC [None]
  - PYREXIA [None]
  - RENAL TUBULAR DISORDER [None]
  - UREA URINE DECREASED [None]
  - URINE PHOSPHATE DECREASED [None]
  - URINE URIC ACID DECREASED [None]
